FAERS Safety Report 22138058 (Version 1)
Quarter: 2023Q1

REPORT INFORMATION
  Report Type: Report from Study
  Country: BR (occurrence: BR)
  Receive Date: 20230325
  Receipt Date: 20230325
  Transmission Date: 20230418
  Serious: Yes (Hospitalization)
  Sender: FDA-Public Use
  Company Number: BR-ABBVIE-4700534

PATIENT
  Sex: Female
  Weight: 78 kg

DRUGS (1)
  1. RINVOQ [Suspect]
     Active Substance: UPADACITINIB
     Indication: Dermatitis atopic
     Dosage: 1 TABLET
     Route: 048
     Dates: start: 20220805, end: 202301

REACTIONS (7)
  - Pertussis [Unknown]
  - Trismus [Unknown]
  - Dermatitis atopic [Not Recovered/Not Resolved]
  - Chest pain [Unknown]
  - Pain [Unknown]
  - Headache [Unknown]
  - Feeding disorder [Unknown]

NARRATIVE: CASE EVENT DATE: 20221201
